FAERS Safety Report 7030097-4 (Version None)
Quarter: 2010Q4

REPORT INFORMATION
  Report Type: 
  Country: None (occurrence: None)
  Receive Date: 20101006
  Receipt Date: 20100928
  Transmission Date: 20110411
  Serious: Yes (Disabling)
  Sender: FDA-Public Use
  Company Number: JP-EISAI INC.-E2090-01312-SPO-JP

PATIENT
  Age: 40 Year
  Sex: Male
  Weight: 65 kg

DRUGS (11)
  1. EXCEGRAN [Suspect]
     Indication: EPILEPSY
     Route: 048
     Dates: start: 20100609, end: 20100714
  2. TARCEVA [Suspect]
     Route: 048
     Dates: start: 20100618, end: 20100622
  3. TARCEVA [Suspect]
     Route: 048
     Dates: start: 20100623, end: 20100708
  4. CRAVIT [Suspect]
     Route: 048
     Dates: start: 20100708, end: 20100713
  5. LOXONIN [Suspect]
     Route: 048
     Dates: start: 20100707, end: 20100714
  6. LANSOPRAZOLE [Concomitant]
  7. BENZALIN [Concomitant]
  8. PREDONINE [Concomitant]
  9. RINDERON [Concomitant]
  10. LENDORMIN [Concomitant]
  11. MERISLON [Concomitant]

REACTIONS (1)
  - OCULOMUCOCUTANEOUS SYNDROME [None]
